FAERS Safety Report 5337675-9 (Version None)
Quarter: 2007Q2

REPORT INFORMATION
  Report Type: 
  Country: None (occurrence: None)
  Receive Date: 20070315
  Receipt Date: 20060407
  Transmission Date: 20071010
  Serious: Yes (Other)
  Sender: FDA-Public Use
  Company Number: PHEH2006US03161

PATIENT
  Age: 56 Year
  Sex: Male
  Weight: 77.1 kg

DRUGS (4)
  1. TRILEPTAL [Suspect]
     Indication: CONVULSION
     Dosage: 600 MG, BID, ORAL
     Route: 048
     Dates: start: 20030806, end: 20050422
  2. LAMICTAL [Concomitant]
  3. SYNTHROID [Concomitant]
  4. LYRICA [Concomitant]

REACTIONS (1)
  - AMNESIA [None]
